FAERS Safety Report 19034528 (Version 1)
Quarter: 2021Q1

REPORT INFORMATION
  Report Type: Spontaneous
  Country: DE (occurrence: DE)
  Receive Date: 20210319
  Receipt Date: 20210319
  Transmission Date: 20210420
  Serious: Yes (Other)
  Sender: FDA-Public Use
  Company Number: DE-ASTRAZENECA-2021A159558

PATIENT
  Age: 50 Year
  Sex: Male

DRUGS (5)
  1. TIOTROPIUM RESPIMAT [Concomitant]
     Active Substance: TIOTROPIUM
  2. NICOTINE. [Concomitant]
     Active Substance: NICOTINE
  3. ICS [Concomitant]
  4. PREDNISOLONE. [Concomitant]
     Active Substance: PREDNISOLONE
  5. BENRALIZUMAB. [Suspect]
     Active Substance: BENRALIZUMAB
     Dosage: UNKNOWN
     Route: 058
     Dates: start: 20180308

REACTIONS (3)
  - Anosmia [Recovered/Resolved]
  - Infection [Unknown]
  - Asthma [Unknown]
